FAERS Safety Report 7443660-3 (Version None)
Quarter: 2011Q2

REPORT INFORMATION
  Report Type: 
  Country: None (occurrence: None)
  Receive Date: 20110428
  Receipt Date: 20110420
  Transmission Date: 20111010
  Serious: Yes (Hospitalization)
  Sender: FDA-Public Use
  Company Number: US-SANOFI-AVENTIS-2011SA025034

PATIENT
  Age: 70 Year
  Sex: Male

DRUGS (9)
  1. PLAVIX [Suspect]
     Indication: STENT PLACEMENT
     Route: 048
     Dates: start: 20110101
  2. PLAVIX [Suspect]
     Indication: ANGIOGRAM
     Route: 048
     Dates: start: 20110101
  3. ISOSORBIDE DINITRATE [Concomitant]
  4. PLAVIX [Suspect]
     Route: 048
     Dates: start: 20110401, end: 20110401
  5. LISINOPRIL [Concomitant]
     Indication: BLOOD PRESSURE
  6. PLAVIX [Suspect]
     Route: 048
     Dates: start: 20110401, end: 20110401
  7. AMLODIPINE [Concomitant]
     Indication: BLOOD PRESSURE
  8. RANITIDINE [Concomitant]
  9. SIMVASTATIN [Concomitant]

REACTIONS (4)
  - CHEST PAIN [None]
  - PRODUCT QUALITY ISSUE [None]
  - OVERDOSE [None]
  - LABORATORY TEST ABNORMAL [None]
